FAERS Safety Report 4602764-0 (Version None)
Quarter: 2005Q1

REPORT INFORMATION
  Report Type: 
  Country: None (occurrence: None)
  Receive Date: 20050309
  Receipt Date: 20050226
  Transmission Date: 20050727
  Serious: Yes (Other)
  Sender: FDA-Public Use
  Company Number: GB-JNJFOC-20050300030

PATIENT
  Age: 77 Year
  Sex: Female
  Weight: 69.85 kg

DRUGS (1)
  1. RISPERDAL [Suspect]
     Indication: PSYCHOTIC DISORDER
     Dosage: TAKEN AT NIGHT
     Route: 049
     Dates: start: 19990201

REACTIONS (1)
  - CYANOSIS [None]
